FAERS Safety Report 10929930 (Version 1)
Quarter: 2015Q1

REPORT INFORMATION
  Report Type: Spontaneous
  Country: US (occurrence: None)
  Receive Date: 20150318
  Receipt Date: 20150318
  Transmission Date: 20150721
  Serious: No
  Sender: FDA-Public Use
  Company Number: None

PATIENT
  Age: 41 Year
  Sex: Female

DRUGS (1)
  1. REBIF [Suspect]
     Active Substance: INTERFERON BETA-1A
     Indication: MULTIPLE SCLEROSIS
     Dosage: MONDAY, WED, FRIDAY
     Route: 058
     Dates: start: 20130314

REACTIONS (3)
  - Dyskinesia [None]
  - Muscle spasms [None]
  - Fall [None]

NARRATIVE: CASE EVENT DATE: 201503
